FAERS Safety Report 6182471-6 (Version None)
Quarter: 2009Q2

REPORT INFORMATION
  Report Type: 
  Country: None (occurrence: None)
  Receive Date: 20090507
  Receipt Date: 20090428
  Transmission Date: 20091009
  Serious: Yes (Other)
  Sender: FDA-Public Use
  Company Number: US-ROCHE-630291

PATIENT
  Age: 19 Year
  Sex: Female

DRUGS (1)
  1. ISOTRETINOIN [Suspect]
     Indication: DRUG USE FOR UNKNOWN INDICATION
     Dosage: LAST DOSE PRIOR TO THE EVENT ON 26 APRIL 2009.
     Route: 065
     Dates: start: 20090226

REACTIONS (6)
  - CHAPPED LIPS [None]
  - CHEILITIS [None]
  - HEADACHE [None]
  - LIP SWELLING [None]
  - NODULE [None]
  - SWELLING FACE [None]
